FAERS Safety Report 9163708 (Version 6)
Quarter: 2013Q4

REPORT INFORMATION
  Report Type: Report from Study
  Country: BE (occurrence: BE)
  Receive Date: 20130314
  Receipt Date: 20131125
  Transmission Date: 20140711
  Serious: Yes (Hospitalization)
  Sender: FDA-Public Use
  Company Number: BE-ROCHE-1200068

PATIENT
  Age: 74 Year
  Sex: Female
  Weight: 56 kg

DRUGS (38)
  1. BEVACIZUMAB [Suspect]
     Indication: COLORECTAL CANCER METASTATIC
     Dosage: DATE OF MOST RECENT DOSE OF BEVACIZUMAB PRIOR TO SAE WAS ON 12/FEB/2013 (DOSE: 285 MG)
     Route: 042
     Dates: start: 20120612
  2. OXALIPLATIN [Suspect]
     Indication: COLORECTAL CANCER METASTATIC
     Dosage: LAST DOSE PRIOR TO SAE IS ON 18/SEP/2012 (LAST DOSE: 129 MG)
     Route: 042
     Dates: start: 20120612, end: 20120918
  3. FOLINIC ACID [Suspect]
     Indication: COLORECTAL CANCER METASTATIC
     Dosage: LAST DOSE PRIOR TO SAE WAS ON 12/FEB/2013 (DOSE: 628 MG)
     Route: 042
     Dates: start: 20120612
  4. FLUOROURACIL [Suspect]
     Indication: COLORECTAL CANCER METASTATIC
     Dosage: LAST DOSE PRIOR TO SAE WAS TAKEN ON 12/FEB/2013 (628MG)
     Route: 040
     Dates: start: 20120612
  5. FLUOROURACIL [Suspect]
     Dosage: LAST DOSE PRIOR TO SAE WAS TAKEN ON 12/FEB/2013 (3760MG)
     Route: 041
     Dates: start: 20120612
  6. BISOPROLOL [Concomitant]
     Indication: HYPERTENSION
     Route: 048
     Dates: start: 20130306
  7. BISOPROLOL [Concomitant]
     Route: 048
     Dates: start: 20130307, end: 20130307
  8. BISOPROLOL [Concomitant]
     Route: 048
     Dates: start: 20130308, end: 20130308
  9. BISOPROLOL [Concomitant]
     Route: 048
     Dates: start: 20130309
  10. BROMAZEPAM [Concomitant]
     Indication: INSOMNIA
     Route: 048
     Dates: start: 20130307
  11. BROMAZEPAM [Concomitant]
     Route: 048
     Dates: start: 20130308, end: 20130312
  12. BROMAZEPAM [Concomitant]
     Route: 048
     Dates: start: 20130313, end: 20130315
  13. BROMAZEPAM [Concomitant]
     Route: 048
     Dates: start: 20130318
  14. LASIX [Concomitant]
     Indication: HYPERTENSION
     Route: 048
     Dates: start: 20120601
  15. LASIX [Concomitant]
     Route: 042
     Dates: start: 20130212, end: 20130212
  16. AMLOR [Concomitant]
     Indication: HYPERTENSION
     Route: 048
     Dates: start: 20120619
  17. LITICAN [Concomitant]
     Indication: PREMEDICATION
     Route: 042
     Dates: start: 20120612, end: 20130212
  18. ZOFRAN [Concomitant]
     Indication: PREMEDICATION
     Route: 042
     Dates: start: 20130103, end: 20130212
  19. ZOFRAN [Concomitant]
     Indication: NAUSEA
     Route: 048
     Dates: start: 20130115, end: 20130217
  20. ZOCOR [Concomitant]
     Indication: HYPERCHOLESTEROLAEMIA
     Route: 048
     Dates: start: 20120612
  21. DEXAMETHASONE [Concomitant]
     Indication: PREMEDICATION
     Route: 042
     Dates: start: 20130103, end: 20130212
  22. PANTOMED (BELGIUM) [Concomitant]
     Route: 048
     Dates: start: 20121212, end: 20130225
  23. PANTOMED (BELGIUM) [Concomitant]
     Route: 048
     Dates: start: 20130226, end: 20130307
  24. MS CONTIN [Concomitant]
     Indication: INTERVERTEBRAL DISC COMPRESSION
     Route: 048
     Dates: start: 20130226, end: 20130307
  25. MOTILIUM (BELGIUM) [Concomitant]
     Indication: ABDOMINAL PAIN UPPER
     Route: 048
  26. MOTILIUM (BELGIUM) [Concomitant]
     Indication: NAUSEA
  27. STEOVIT [Concomitant]
     Indication: OSTEOPOROSIS PROPHYLAXIS
     Route: 048
     Dates: start: 20130307
  28. D-CURE [Concomitant]
     Indication: OSTEOPOROSIS PROPHYLAXIS
     Route: 048
     Dates: start: 20130307
  29. DAFALGAN [Concomitant]
     Indication: INTERVERTEBRAL DISC COMPRESSION
     Route: 048
     Dates: start: 20130307
  30. DOLZAM [Concomitant]
     Indication: INTERVERTEBRAL DISC COMPRESSION
     Route: 048
     Dates: start: 20130309, end: 20130311
  31. TRAZOLAN [Concomitant]
     Indication: INSOMNIA
     Route: 048
     Dates: start: 20130308, end: 20130310
  32. TRAZOLAN [Concomitant]
     Route: 048
     Dates: start: 20130316, end: 20130317
  33. FLEET [Concomitant]
     Indication: CONSTIPATION
     Route: 054
     Dates: start: 20130312, end: 20130312
  34. TRANSTEC [Concomitant]
     Indication: INTERVERTEBRAL DISC COMPRESSION
     Route: 062
     Dates: start: 20130311, end: 20130313
  35. OXYNORM [Concomitant]
     Indication: INTERVERTEBRAL DISC COMPRESSION
     Route: 048
     Dates: start: 20130314, end: 20130316
  36. XANAX [Concomitant]
     Indication: ANXIETY
     Route: 048
     Dates: start: 20130318, end: 20130319
  37. TEMESTA (BELGIUM) [Concomitant]
     Indication: AGGRESSION
     Route: 048
     Dates: start: 20130318, end: 20130318
  38. PLACEBO [Suspect]
     Indication: COLON CANCER
     Dosage: DATE OF MOST RECENT DOSE OF MEGF0444A PRIOR TO SAE WAS ON 12/FEB/2013
     Route: 042
     Dates: start: 20120612

REACTIONS (1)
  - Fall [Recovered/Resolved]
